FAERS Safety Report 24298787 (Version 2)
Quarter: 2024Q3

REPORT INFORMATION
  Report Type: Spontaneous
  Country: US (occurrence: US)
  Receive Date: 20240909
  Receipt Date: 20240924
  Transmission Date: 20241016
  Serious: No
  Sender: BAYER
  Company Number: US-BAYER-2024A126740

PATIENT
  Age: 87 Year
  Sex: Female

DRUGS (2)
  1. MILK OF MAGNESIA ORIGINAL [Suspect]
     Active Substance: MAGNESIUM HYDROXIDE
     Dosage: 1 DF
     Route: 048
     Dates: start: 20240902, end: 20240902
  2. MIRALAX [Suspect]
     Active Substance: POLYETHYLENE GLYCOL 3350
     Dosage: 1 CAPFULL
     Route: 048

REACTIONS (3)
  - Drug ineffective [None]
  - Drug ineffective [None]
  - Product taste abnormal [None]

NARRATIVE: CASE EVENT DATE: 20240902
